FAERS Safety Report 21591913 (Version 1)
Quarter: 2022Q4

REPORT INFORMATION
  Report Type: Spontaneous
  Country: US (occurrence: None)
  Receive Date: 20221112
  Receipt Date: 20221112
  Transmission Date: 20230112
  Serious: No
  Sender: FDA-Public Use
  Company Number: None

PATIENT
  Age: 61 Year
  Sex: Male
  Weight: 121.5 kg

DRUGS (1)
  1. OXYCODONE AND ACETAMINOPHEN [Suspect]
     Active Substance: ACETAMINOPHEN\OXYCODONE HYDROCHLORIDE
     Indication: Pain
     Dosage: OTHER QUANTITY : 1 TABLET(S);?FREQUENCY : EVERY 8 HOURS;?
     Route: 048
     Dates: start: 20221111, end: 20221112

REACTIONS (4)
  - Product substitution issue [None]
  - Drug ineffective [None]
  - Product complaint [None]
  - Quality of life decreased [None]
